FAERS Safety Report 24878159 (Version 1)
Quarter: 2025Q1

REPORT INFORMATION
  Report Type: Spontaneous
  Country: IL (occurrence: IL)
  Receive Date: 20250123
  Receipt Date: 20250123
  Transmission Date: 20250409
  Serious: Yes (Hospitalization)
  Sender: BAYER HEALTHCARE PHARMACEUTICALS INC.
  Company Number: IL-BAYER-2025A009485

PATIENT
  Age: 71 Year

DRUGS (2)
  1. KERENDIA [Suspect]
     Active Substance: FINERENONE
     Dosage: 20 MG, QD
  2. KERENDIA [Suspect]
     Active Substance: FINERENONE
     Dosage: 10 MG, QD

REACTIONS (2)
  - Cellulitis [None]
  - Plasma cell myeloma [None]
